FAERS Safety Report 12212285 (Version 1)
Quarter: 2016Q1

REPORT INFORMATION
  Report Type: Other
  Country: US (occurrence: US)
  Receive Date: 20160325
  Receipt Date: 20160325
  Transmission Date: 20160526
  Serious: No
  Sender: FDA-Public Use
  Company Number: US-DEP_02502_2015

PATIENT
  Sex: Female

DRUGS (5)
  1. GRALISE [Suspect]
     Active Substance: GABAPENTIN
     Indication: OFF LABEL USE
     Route: 048
  2. GRALISE [Suspect]
     Active Substance: GABAPENTIN
     Indication: PAIN
     Dosage: TITRATED UP TO 2700 MG BY INCREASING 300 MG EVERY 3-4 DAYS, ONCE DAILY, AT NIGHT
     Route: 048
     Dates: start: 201406
  3. MUSCLE RELAXANT [Concomitant]
     Active Substance: UNSPECIFIED INGREDIENT
     Dosage: DF
  4. AMBIEN [Concomitant]
     Active Substance: ZOLPIDEM TARTRATE
     Dosage: DF
  5. GRALISE [Suspect]
     Active Substance: GABAPENTIN
     Indication: NERVE INJURY
     Dosage: AT NIGHT
     Route: 048
     Dates: start: 201406, end: 201406

REACTIONS (2)
  - Drug ineffective for unapproved indication [Recovered/Resolved]
  - Sleep disorder [Unknown]

NARRATIVE: CASE EVENT DATE: 201406
